FAERS Safety Report 25524537 (Version 2)
Quarter: 2025Q3

REPORT INFORMATION
  Report Type: Spontaneous
  Country: US (occurrence: US)
  Receive Date: 20250707
  Receipt Date: 20250901
  Transmission Date: 20251021
  Serious: Yes (Hospitalization)
  Sender: SANOFI AVENTIS
  Company Number: US-SA-2025SA190149

PATIENT
  Age: 63 Year
  Sex: Female

DRUGS (12)
  1. KEVZARA [Suspect]
     Active Substance: SARILUMAB
     Indication: Polymyalgia rheumatica
     Dosage: 150 MG, QOW
     Route: 058
     Dates: start: 20250703
  2. CYMBALTA [Concomitant]
     Active Substance: DULOXETINE HYDROCHLORIDE
  3. MELOXICAM [Concomitant]
     Active Substance: MELOXICAM
  4. PROTONIX [Concomitant]
     Active Substance: PANTOPRAZOLE SODIUM
  5. ROSUVASTATIN [Concomitant]
     Active Substance: ROSUVASTATIN
  6. XANAX [Concomitant]
     Active Substance: ALPRAZOLAM
  7. BENICAR [Concomitant]
     Active Substance: OLMESARTAN MEDOXOMIL
  8. ROBAXIN [Concomitant]
     Active Substance: METHOCARBAMOL
  9. ROSUVASTATIN [Concomitant]
     Active Substance: ROSUVASTATIN
  10. WELLBUTRIN [Concomitant]
     Active Substance: BUPROPION HYDROCHLORIDE
  11. HYDROCODONE BITARTRATE [Concomitant]
     Active Substance: HYDROCODONE BITARTRATE
  12. ACETAMINOPHEN\CODEINE PHOSPHATE [Concomitant]
     Active Substance: ACETAMINOPHEN\CODEINE PHOSPHATE

REACTIONS (5)
  - Gait disturbance [Recovering/Resolving]
  - Pain [Recovering/Resolving]
  - Feeling abnormal [Recovering/Resolving]
  - Loss of personal independence in daily activities [Not Recovered/Not Resolved]
  - Fatigue [Recovering/Resolving]

NARRATIVE: CASE EVENT DATE: 20250601
